FAERS Safety Report 9914016 (Version 2)
Quarter: 2014Q1

REPORT INFORMATION
  Report Type: Spontaneous
  Country: US (occurrence: US)
  Receive Date: 20140220
  Receipt Date: 20140313
  Transmission Date: 20141002
  Serious: Yes (Other)
  Sender: FDA-Public Use
  Company Number: US-GLAXOSMITHKLINE-A1060662A

PATIENT
  Age: 66 Year
  Sex: Female

DRUGS (10)
  1. IMITREX [Suspect]
     Indication: MIGRAINE
  2. IMITREX [Suspect]
     Indication: MIGRAINE
     Route: 045
  3. SUMATRIPTAN SUCCINATE [Suspect]
     Indication: MIGRAINE
     Dosage: 100MG AS REQUIRED
     Route: 048
     Dates: end: 201401
  4. SUMATRIPTAN SUCCINATE [Suspect]
     Indication: MIGRAINE
     Route: 045
  5. SUMATRIPTAN SUCCINATE [Suspect]
     Indication: MIGRAINE
     Dosage: 100MG AS REQUIRED
     Route: 048
     Dates: end: 201401
  6. PERSANTINE [Suspect]
     Indication: PRODUCT USED FOR UNKNOWN INDICATION
     Route: 065
  7. UNKNOWN [Suspect]
     Indication: PRODUCT USED FOR UNKNOWN INDICATION
     Route: 065
  8. CELEXA [Concomitant]
  9. PREVACID [Concomitant]
  10. KLONOPIN [Concomitant]

REACTIONS (3)
  - Electrocardiogram Q wave abnormal [Recovered/Resolved]
  - Electrocardiogram T wave inversion [Recovered/Resolved]
  - Heart rate irregular [Recovered/Resolved]
